FAERS Safety Report 7176393-1 (Version None)
Quarter: 2010Q4

REPORT INFORMATION
  Report Type: 
  Country: None (occurrence: None)
  Receive Date: 20101220
  Receipt Date: 20101210
  Transmission Date: 20110411
  Serious: Yes (Hospitalization)
  Sender: FDA-Public Use
  Company Number: BR-US-EMD SERONO, INC.-7031709

PATIENT
  Sex: Male

DRUGS (5)
  1. REBIF [Suspect]
     Indication: RELAPSING-REMITTING MULTIPLE SCLEROSIS
     Dates: start: 20100405
  2. AMLOCOR [Concomitant]
  3. TORLOS-H [Concomitant]
  4. FLUOXETINE [Concomitant]
  5. RETEMIC [Concomitant]

REACTIONS (3)
  - FALL [None]
  - HEAD INJURY [None]
  - URINARY TRACT INFECTION [None]
